FAERS Safety Report 23086480 (Version 3)
Quarter: 2023Q4

REPORT INFORMATION
  Report Type: Spontaneous
  Country: US (occurrence: US)
  Receive Date: 20231019
  Receipt Date: 20231113
  Transmission Date: 20240110
  Serious: No
  Sender: FDA-Public Use
  Company Number: US-BRISTOL-MYERS SQUIBB COMPANY-2023-146488

PATIENT
  Age: 54 Year
  Sex: Female

DRUGS (2)
  1. ORENCIA [Suspect]
     Active Substance: ABATACEPT
     Indication: Psoriatic arthropathy
     Route: 058
     Dates: start: 20230808
  2. ORENCIA [Suspect]
     Active Substance: ABATACEPT
     Indication: Polyarthritis

REACTIONS (13)
  - Fatigue [Unknown]
  - Myalgia [Unknown]
  - Headache [Unknown]
  - Irritability [Unknown]
  - Abdominal discomfort [Unknown]
  - Anxiety [Unknown]
  - Drug ineffective [Unknown]
  - Cardiac disorder [Unknown]
  - Heart rate irregular [Unknown]
  - Dyspnoea [Unknown]
  - Back pain [Unknown]
  - Nausea [Unknown]
  - Sleep disorder [Unknown]
